FAERS Safety Report 11145697 (Version 1)
Quarter: 2015Q2

REPORT INFORMATION
  Report Type: Spontaneous
  Country: US (occurrence: US)
  Receive Date: 20150528
  Receipt Date: 20150528
  Transmission Date: 20150821
  Serious: Yes (Death)
  Sender: FDA-Public Use
  Company Number: US-ACTELION-A-US2015-118527

PATIENT
  Age: 57 Year
  Sex: Female

DRUGS (12)
  1. EPLERENONE. [Concomitant]
     Active Substance: EPLERENONE
  2. LEVOTHYROXINE [Concomitant]
     Active Substance: LEVOTHYROXINE
  3. BUMETANIDE. [Concomitant]
     Active Substance: BUMETANIDE
  4. RIOCIGUAT [Concomitant]
     Active Substance: RIOCIGUAT
  5. ESCITALOPRAM [Concomitant]
     Active Substance: ESCITALOPRAM OXALATE
  6. DIGITEK [Concomitant]
     Active Substance: DIGOXIN
  7. POTASSIUM CHLORIDE. [Concomitant]
     Active Substance: POTASSIUM CHLORIDE
  8. CLONAZEPAM. [Concomitant]
     Active Substance: CLONAZEPAM
  9. VENTAVIS [Suspect]
     Active Substance: ILOPROST
     Indication: PULMONARY ARTERIAL HYPERTENSION
     Route: 055
  10. ASPIRIN. [Concomitant]
     Active Substance: ASPIRIN
  11. OPSUMIT [Suspect]
     Active Substance: MACITENTAN
     Indication: PULMONARY ARTERIAL HYPERTENSION
     Dosage: 10 MG, QD
     Route: 048
  12. WARFARIN [Concomitant]
     Active Substance: WARFARIN

REACTIONS (2)
  - Disease complication [Fatal]
  - Pulmonary arterial hypertension [Fatal]

NARRATIVE: CASE EVENT DATE: 20150521
